FAERS Safety Report 7465035-3 (Version None)
Quarter: 2011Q2

REPORT INFORMATION
  Report Type: 
  Country: None (occurrence: None)
  Receive Date: 20110509
  Receipt Date: 20110411
  Transmission Date: 20111010
  Serious: Yes (Hospitalization, Other)
  Sender: FDA-Public Use
  Company Number: US-BAYER-201033833NA

PATIENT
  Age: 25 Year
  Sex: Female
  Weight: 85.714 kg

DRUGS (7)
  1. YASMIN [Suspect]
     Indication: ACNE
     Dosage: UNK UNK, UNK
     Route: 065
     Dates: start: 20010501, end: 20090801
  2. POTASSIUM [POTASSIUM] [Concomitant]
     Dosage: UNK
     Dates: start: 20040101
  3. YAZ [Suspect]
     Indication: ACNE
     Dosage: UNK UNK, UNK
     Route: 065
     Dates: start: 20010101, end: 20090801
  4. ALEVE [Concomitant]
     Dosage: UNK
     Dates: start: 19930101, end: 20110301
  5. ALBUTEROL [Concomitant]
     Dosage: UNK
     Dates: start: 19980101, end: 20100701
  6. DROSPIRENONE AND ETHINYL ESTRADIOL [Suspect]
     Indication: ACNE
     Dosage: UNK UNK, UNK
     Route: 065
     Dates: start: 20010501, end: 20090801
  7. IBUPROFEN [Concomitant]
     Dosage: UNK
     Dates: start: 19930101, end: 20110301

REACTIONS (6)
  - CEREBROVASCULAR ACCIDENT [None]
  - MYOCARDIAL INFARCTION [None]
  - DEPRESSION [None]
  - DEEP VEIN THROMBOSIS [None]
  - PULMONARY EMBOLISM [None]
  - GALLBLADDER DISORDER [None]
